FAERS Safety Report 6261360-2 (Version None)
Quarter: 2009Q3

REPORT INFORMATION
  Report Type: 
  Country: None (occurrence: None)
  Receive Date: 20090709
  Receipt Date: 20090706
  Transmission Date: 20100115
  Serious: Yes (Death)
  Sender: FDA-Public Use
  Company Number: BY-PFIZER INC-2009223157

PATIENT
  Age: 50 Year

DRUGS (2)
  1. FRAGMIN [Suspect]
     Indication: THROMBOSIS PROPHYLAXIS
     Route: 058
     Dates: start: 20090519, end: 20090522
  2. HEPARIN SODIUM [Suspect]
     Indication: THROMBOSIS PROPHYLAXIS
     Dosage: 2500 IU, EVERY 4 HRS
     Route: 058
     Dates: start: 20090517, end: 20090518

REACTIONS (1)
  - CEREBROVASCULAR ACCIDENT [None]
